FAERS Safety Report 4945412-2 (Version None)
Quarter: 2006Q1

REPORT INFORMATION
  Report Type: 
  Country: None (occurrence: None)
  Receive Date: 20060316
  Receipt Date: 20060120
  Transmission Date: 20060701
  Serious: Yes (Hospitalization)
  Sender: FDA-Public Use
  Company Number: CA-ROCHE-433088

PATIENT
  Age: 52 Year
  Sex: Female
  Weight: 62 kg

DRUGS (13)
  1. MYCOPHENOLATE MOFETIL [Suspect]
     Route: 048
     Dates: start: 20060105, end: 20060120
  2. MYCOPHENOLATE MOFETIL [Suspect]
     Route: 048
     Dates: start: 20060121, end: 20060126
  3. MYCOPHENOLATE MOFETIL [Suspect]
     Route: 048
     Dates: start: 20060127
  4. TACROLIMUS [Suspect]
     Route: 065
     Dates: start: 20051214
  5. METHYLPREDNISOLONE [Suspect]
     Indication: DRUG USE FOR UNKNOWN INDICATION
     Route: 065
  6. SIMULECT [Suspect]
     Route: 065
  7. RANITIDINE [Concomitant]
     Route: 065
     Dates: start: 20051216, end: 20060118
  8. SEPTRA SS [Concomitant]
     Route: 065
  9. ADALAT [Concomitant]
     Dates: start: 20060103
  10. CALCIUM CARBONATE [Concomitant]
     Dates: start: 20051215
  11. CENTRUM FORTE [Concomitant]
     Dates: start: 20051215
  12. ZINC [Concomitant]
     Dates: start: 20051228
  13. TRIFEREXX [Concomitant]
     Dates: start: 20060114

REACTIONS (1)
  - ERYTHEMA INFECTIOSUM [None]
